FAERS Safety Report 9532194 (Version 1)
Quarter: 2013Q3

REPORT INFORMATION
  Report Type: Spontaneous
  Country: US (occurrence: US)
  Receive Date: 20130918
  Receipt Date: 20130918
  Transmission Date: 20140515
  Serious: No
  Sender: FDA-Public Use
  Company Number: US-009507513-1309USA006833

PATIENT
  Sex: 0

DRUGS (1)
  1. SOLARCAINE COOL ALOE WITH LIDOCAINE SPRAY [Suspect]
     Indication: SUNBURN
     Dosage: UNK, UNKNOWN
     Route: 061

REACTIONS (2)
  - Chemical injury [Not Recovered/Not Resolved]
  - Blister [Not Recovered/Not Resolved]
